FAERS Safety Report 8136272-X (Version None)
Quarter: 2012Q1

REPORT INFORMATION
  Report Type: 
  Country: None (occurrence: None)
  Receive Date: 20120103
  Receipt Date: 20111024
  Transmission Date: 20120608
  Serious: No
  Sender: FDA-Public Use
  Company Number: AE-2011-002638

PATIENT
  Age: 63 Year
  Sex: Male
  Weight: 60.3284 kg

DRUGS (5)
  1. BENADRYL [Concomitant]
  2. MULTIVITAMIN [Concomitant]
  3. INCIVEK [Suspect]
     Dosage: 2250 MG (750 MG,3 IN 1 D), ORAL
     Route: 048
     Dates: start: 20111017
  4. PEGASYS [Concomitant]
  5. RIBASPHERE [Concomitant]

REACTIONS (7)
  - FATIGUE [None]
  - HAEMORRHOIDS [None]
  - INFLUENZA LIKE ILLNESS [None]
  - ASTHENIA [None]
  - SENSATION OF PRESSURE [None]
  - RASH PRURITIC [None]
  - ANAL HAEMORRHAGE [None]
